FAERS Safety Report 12693576 (Version 1)
Quarter: 2016Q3

REPORT INFORMATION
  Report Type: Spontaneous
  Country: FR (occurrence: FR)
  Receive Date: 20160829
  Receipt Date: 20160829
  Transmission Date: 20161109
  Serious: Yes (Other)
  Sender: FDA-Public Use
  Company Number: FR-PFIZER INC-2016391543

PATIENT
  Age: 49 Year
  Sex: Female

DRUGS (20)
  1. SERESTA [Interacting]
     Active Substance: OXAZEPAM
     Indication: BIPOLAR DISORDER
     Dosage: 1 DF, 1X/DAY
     Route: 048
     Dates: end: 20150926
  2. SERESTA [Interacting]
     Active Substance: OXAZEPAM
     Dosage: UNK
  3. INEXIUM /01479302/ [Concomitant]
     Active Substance: ESOMEPRAZOLE MAGNESIUM
     Dosage: UNK
     Route: 048
  4. XATRAL [Concomitant]
     Active Substance: ALFUZOSIN
     Dosage: UNK
     Route: 048
  5. TEMERIT [Concomitant]
     Active Substance: NEBIVOLOL
     Dosage: UNK
     Route: 048
  6. FENOFIBRATE. [Concomitant]
     Active Substance: FENOFIBRATE
     Dosage: UNK
     Route: 048
  7. EFFEXOR LP [Suspect]
     Active Substance: VENLAFAXINE HYDROCHLORIDE
     Indication: BIPOLAR DISORDER
     Dosage: 150 MG, 2X/DAY
     Route: 048
     Dates: end: 20150816
  8. EFFEXOR LP [Interacting]
     Active Substance: VENLAFAXINE HYDROCHLORIDE
     Dosage: 375 MG, DAILY
     Route: 048
     Dates: start: 20150817
  9. LOXAPAC /00401801/ [Interacting]
     Active Substance: LOXAPINE SUCCINATE
     Indication: BIPOLAR DISORDER
     Dosage: 50 GTT, 3X/DAY
     Route: 048
  10. LYSANXIA [Interacting]
     Active Substance: PRAZEPAM
     Indication: BIPOLAR DISORDER
     Dosage: 10 MG, 3X/DAY
     Route: 048
     Dates: end: 20150824
  11. ALLOPURINOL. [Concomitant]
     Active Substance: ALLOPURINOL
     Dosage: UNK
     Route: 048
  12. METFORMIN [Concomitant]
     Active Substance: METFORMIN HYDROCHLORIDE
     Dosage: UNK
     Route: 048
  13. DEPAMIDE [Concomitant]
     Active Substance: VALPROMIDE
     Dosage: UNK
     Route: 048
  14. DIPIPERON [Interacting]
     Active Substance: PIPAMPERONE
     Indication: BIPOLAR DISORDER
     Dosage: 40 MG, 1X/DAY
     Route: 048
     Dates: end: 20150816
  15. LOXAPAC /00401801/ [Interacting]
     Active Substance: LOXAPINE SUCCINATE
     Dosage: UNK
  16. MESTINON [Concomitant]
     Active Substance: PYRIDOSTIGMINE BROMIDE
     Dosage: UNK
     Route: 048
  17. NORSET [Interacting]
     Active Substance: MIRTAZAPINE
     Indication: BIPOLAR DISORDER
     Dosage: 15 MG, 2X/DAY
     Route: 048
     Dates: end: 20150926
  18. LYSANXIA [Interacting]
     Active Substance: PRAZEPAM
     Dosage: 20 MG, 3X/DAY
     Route: 048
     Dates: start: 20150825, end: 20150926
  19. STILNOX [Concomitant]
     Active Substance: ZOLPIDEM TARTRATE
     Dosage: UNK
     Route: 048
  20. DIPIPERON [Interacting]
     Active Substance: PIPAMPERONE
     Dosage: 80 MG, 1X/DAY
     Route: 048
     Dates: start: 20150817

REACTIONS (5)
  - Loss of consciousness [Unknown]
  - Road traffic accident [Unknown]
  - Malaise [Recovered/Resolved]
  - Presyncope [Unknown]
  - Drug interaction [Recovered/Resolved]

NARRATIVE: CASE EVENT DATE: 20150926
